FAERS Safety Report 4714631-2 (Version None)
Quarter: 2005Q3

REPORT INFORMATION
  Report Type: 
  Country: None (occurrence: None)
  Receive Date: 20050714
  Receipt Date: 20050705
  Transmission Date: 20060218
  Serious: Yes (Other)
  Sender: FDA-Public Use
  Company Number: 2005096353

PATIENT
  Age: 70 Year
  Sex: Female

DRUGS (1)
  1. LISTERINE, (MENTHOL, METHYL SALICYLATE, EUCALYPTOL, THYMOL) [Suspect]
     Dosage: 3 TO 4 CUPS ONCE, ORAL
     Route: 048
     Dates: start: 20050705, end: 20050705

REACTIONS (3)
  - FALL [None]
  - MEDICATION ERROR [None]
  - OVERDOSE [None]
